FAERS Safety Report 10451642 (Version 1)
Quarter: 2014Q3

REPORT INFORMATION
  Report Type: Spontaneous
  Country: US (occurrence: US)
  Receive Date: 20140914
  Receipt Date: 20140914
  Transmission Date: 20150326
  Serious: Yes (Life-Threatening, Hospitalization)
  Sender: FDA-Public Use
  Company Number: US-BRISTOL-MYERS SQUIBB COMPANY-21377528

PATIENT
  Age: 65 Year
  Sex: Female

DRUGS (4)
  1. ELIQUIS [Suspect]
     Active Substance: APIXABAN
     Dates: start: 201406
  2. ALTACE [Concomitant]
     Active Substance: RAMIPRIL
  3. ATIVAN [Concomitant]
     Active Substance: LORAZEPAM
  4. COREG [Concomitant]
     Active Substance: CARVEDILOL

REACTIONS (2)
  - Disseminated intravascular coagulation [Unknown]
  - Haemorrhage [Unknown]
